FAERS Safety Report 4966481-X (Version None)
Quarter: 2006Q2

REPORT INFORMATION
  Report Type: 
  Country: None (occurrence: None)
  Receive Date: 20060403
  Receipt Date: 20060321
  Transmission Date: 20061013
  Serious: Yes (Hospitalization)
  Sender: FDA-Public Use
  Company Number: 2006SP001329

PATIENT
  Age: 67 Year
  Sex: Male
  Weight: 113.3993 kg

DRUGS (14)
  1. XOPENEX [Suspect]
     Indication: EMPHYSEMA
     Dosage: 1.25 MG; QID; INHALATION
     Route: 055
     Dates: start: 20050801, end: 20060320
  2. NASPAN [Concomitant]
  3. POTASSIUM CHLORIDE [Concomitant]
  4. ATORVASTATIN CALCIUM [Concomitant]
  5. METOPROLOL TARTRATE [Concomitant]
  6. AMARYL [Concomitant]
  7. PAROXETINE HCL [Concomitant]
  8. AVANDAMET [Concomitant]
  9. ADVAIR DISKUS 100/50 [Concomitant]
  10. ASPIRIN [Concomitant]
  11. TIOTROPIUM BROMIDE [Concomitant]
  12. ASCORBIC ACID [Concomitant]
  13. CALCIUM GLUCONATE [Concomitant]
  14. VITAMINS [Concomitant]

REACTIONS (2)
  - LUNG INFECTION [None]
  - THROAT TIGHTNESS [None]
